FAERS Safety Report 4636834-8 (Version None)
Quarter: 2005Q2

REPORT INFORMATION
  Report Type: 
  Country: None (occurrence: None)
  Receive Date: 20050414
  Receipt Date: 20050331
  Transmission Date: 20051028
  Serious: Yes (Hospitalization)
  Sender: FDA-Public Use
  Company Number: 230056M05USA

PATIENT
  Age: 48 Year
  Sex: Female

DRUGS (3)
  1. REBIF [Suspect]
     Indication: MULTIPLE SCLEROSIS
     Dosage: 44 MCG, 3 IN 1 WEEKS, SUBCUTANEOUS
     Route: 058
     Dates: start: 20031101
  2. ALL OTHER NON-THERAPEUTIC PRODUCTS [Concomitant]
  3. THYROID TAB [Concomitant]

REACTIONS (4)
  - CELLULITIS [None]
  - LIMB INJURY [None]
  - LOCALISED INFECTION [None]
  - OSTEOMYELITIS [None]
